FAERS Safety Report 5725766-X (Version None)
Quarter: 2008Q2

REPORT INFORMATION
  Report Type: 
  Country: None (occurrence: None)
  Receive Date: 20080429
  Receipt Date: 20080416
  Transmission Date: 20081010
  Serious: Yes (Hospitalization)
  Sender: FDA-Public Use
  Company Number: 2008-01147

PATIENT
  Age: 66 Year
  Sex: Male
  Weight: 111.3 kg

DRUGS (23)
  1. VELCADE [Suspect]
     Indication: MULTIPLE MYELOMA
     Dosage: 1 MG/M2, INTRAVENOUS
     Route: 042
     Dates: start: 20040918
  2. DEXAMETHASONE TAB [Suspect]
     Indication: MULTIPLE MYELOMA
     Dosage: 40 MG
     Dates: start: 20040921
  3. THALIDOMIDE [Suspect]
     Indication: MULTIPLE MYELOMA
     Dosage: 200 MG
     Dates: start: 20040921
  4. CISPLATIN [Suspect]
     Indication: MULTIPLE MYELOMA
     Dosage: 10 MG/M2
     Dates: start: 20040921
  5. DOXORUBICIN HCL [Suspect]
     Indication: MULTIPLE MYELOMA
     Dosage: 10 MG/M2
     Dates: start: 20040921
  6. CYCLOPHOSPHAMIDE [Suspect]
     Indication: MULTIPLE MYELOMA
     Dosage: 400 MG/M2
     Dates: start: 20040921
  7. ETOPOSIDE [Suspect]
     Indication: MULTIPLE MYELOMA
     Dosage: 40 MG/M2
     Dates: start: 20040921
  8. MELPHALAN(MELPHALAN) VIAL [Suspect]
     Indication: MULTIPLE MYELOMA
     Dosage: 200 MG/M2
     Dates: start: 20041209, end: 20050303
  9. ACYCLOVIR [Concomitant]
  10. LEVAQUIN [Concomitant]
  11. CALCIUM CARBONATE (CALCIUM CARBONATE) [Concomitant]
  12. TERAZOSIN HYDROCHLORIDE [Concomitant]
  13. FLOMAX [Concomitant]
  14. CARDIZEM CD [Concomitant]
  15. FOLIC ACID [Concomitant]
  16. REGLAN [Concomitant]
  17. MULTIVITAMINS (ERGOCALCIFEROL, PANTHENOL, NICOTINAMIDE, RIBOFLAVIN, TH [Concomitant]
  18. DOSS (DANTRON, DOCUSATE SODIUM) [Concomitant]
  19. EPOGEN [Concomitant]
  20. LOVENOX [Concomitant]
  21. VALTREX [Concomitant]
  22. PROSCAR [Concomitant]
  23. ZANTAC [Concomitant]

REACTIONS (2)
  - CELLULITIS [None]
  - HYPOTENSION [None]
